FAERS Safety Report 18097311 (Version 1)
Quarter: 2020Q3

REPORT INFORMATION
  Report Type: Spontaneous
  Country: US (occurrence: US)
  Receive Date: 20200727
  Receipt Date: 20200727
  Transmission Date: 20201103
  Serious: Yes (Other)
  Sender: FDA-Public Use
  Company Number: None

PATIENT
  Age: 45 Year
  Sex: Male
  Weight: 94.5 kg

DRUGS (1)
  1. NALGENE HAND SANITIZER [Suspect]
     Active Substance: ALCOHOL
     Indication: COVID-19
     Dosage: ?          OTHER STRENGTH:75%;QUANTITY:1 SPRAY(S);?
     Route: 061

REACTIONS (3)
  - Application site rash [None]
  - Application site pruritus [None]
  - Application site swelling [None]

NARRATIVE: CASE EVENT DATE: 20200723
